FAERS Safety Report 4529360-8 (Version None)
Quarter: 2004Q4

REPORT INFORMATION
  Report Type: 
  Country: None (occurrence: None)
  Receive Date: 20041216
  Receipt Date: 20030828
  Transmission Date: 20050328
  Serious: Yes (Congenital Anomaly)
  Sender: FDA-Public Use
  Company Number: GB-ABBOTT-03P-167-0231243-00

PATIENT
  Sex: Female

DRUGS (2)
  1. VALPROATE SODIUM [Suspect]
     Indication: DRUG EXPOSURE DURING PREGNANCY
  2. VIGABATRIN [Suspect]
     Indication: DRUG EXPOSURE DURING PREGNANCY

REACTIONS (27)
  - ANOMALY OF EXTERNAL EAR CONGENITAL [None]
  - ARTHROPATHY [None]
  - CONGENITAL ATRIAL SEPTAL DEFECT [None]
  - CONGENITAL FLAT FEET [None]
  - CONGENITAL NOSE MALFORMATION [None]
  - CONGENITAL VENTRICULAR SEPTAL DEFECT [None]
  - DEVELOPMENTAL DELAY [None]
  - DRUG EXPOSURE DURING PREGNANCY [None]
  - DYSGRAPHIA [None]
  - DYSPNOEA [None]
  - FACIAL DYSMORPHISM [None]
  - FOETAL DISTRESS SYNDROME [None]
  - FOETAL VALPROATE SYNDROME [None]
  - HAEMANGIOMA CONGENITAL [None]
  - HEAD DEFORMITY [None]
  - HEARING IMPAIRED [None]
  - HYPOTONIA [None]
  - LEARNING DISORDER [None]
  - MEMORY IMPAIRMENT [None]
  - OTITIS MEDIA [None]
  - PECTUS EXCAVATUM [None]
  - PHALANGEAL HYPOPLASIA [None]
  - READING DISORDER [None]
  - SPEECH DISORDER [None]
  - SPEECH DISORDER DEVELOPMENTAL [None]
  - SUPERNUMERARY NIPPLE [None]
  - TACHYPNOEA [None]
